FAERS Safety Report 4545383-7 (Version None)
Quarter: 2005Q1

REPORT INFORMATION
  Report Type: 
  Country: None (occurrence: None)
  Receive Date: 20050103
  Receipt Date: 20041227
  Transmission Date: 20050727
  Serious: Yes (Hospitalization)
  Sender: FDA-Public Use
  Company Number: HQWYE306521JUL04

PATIENT
  Age: 55 Year
  Sex: Female

DRUGS (1)
  1. PREMELLE (CONJUGATED ESTROGENS/MEDROXYPROGESTERONE ACETATE-TABLET) [Suspect]
     Indication: HORMONE REPLACEMENT THERAPY
     Route: 048
     Dates: start: 20021121, end: 20040706

REACTIONS (1)
  - SQUAMOUS CELL CARCINOMA OF THE CERVIX [None]
